FAERS Safety Report 16563148 (Version 6)
Quarter: 2020Q1

REPORT INFORMATION
  Report Type: Spontaneous
  Country: US (occurrence: US)
  Receive Date: 20190711
  Receipt Date: 20200129
  Transmission Date: 20200409
  Serious: Yes (Hospitalization)
  Sender: FDA-Public Use
  Company Number: US-ACTELION-A-NJ2019-192829

PATIENT
  Sex: Female
  Weight: 58.96 kg

DRUGS (6)
  1. OPSUMIT [Suspect]
     Active Substance: MACITENTAN
     Indication: PULMONARY ARTERIAL HYPERTENSION
     Dosage: 10 MG
     Route: 048
  2. METOPROLOL. [Concomitant]
     Active Substance: METOPROLOL
  3. VELETRI [Suspect]
     Active Substance: EPOPROSTENOL
     Indication: PULMONARY ARTERIAL HYPERTENSION
     Dosage: 25 NG/KG, PER MIN
     Route: 042
     Dates: start: 2014
  4. DIGOXIN. [Concomitant]
     Active Substance: DIGOXIN
  5. SPIRONOLACTONE. [Concomitant]
     Active Substance: SPIRONOLACTONE
  6. THYROID [Concomitant]
     Active Substance: LEVOTHYROXINE\LIOTHYRONINE

REACTIONS (10)
  - Vascular device infection [Recovered/Resolved]
  - Sepsis [Recovered/Resolved]
  - Catheter site discharge [Recovered/Resolved]
  - Catheter management [Recovered/Resolved]
  - Device breakage [Recovered/Resolved]
  - Pyrexia [Recovered/Resolved]
  - Blood culture positive [Recovered/Resolved]
  - Stenotrophomonas infection [Recovered/Resolved]
  - Catheter site infection [Recovered/Resolved]
  - Sinusitis [Unknown]

NARRATIVE: CASE EVENT DATE: 2019
